FAERS Safety Report 4311757-2 (Version None)
Quarter: 2004Q1

REPORT INFORMATION
  Report Type: 
  Country: None (occurrence: None)
  Receive Date: 20040302
  Receipt Date: 20031205
  Transmission Date: 20041129
  Serious: No
  Sender: FDA-Public Use
  Company Number: 200329694BWH

PATIENT
  Age: 63 Year
  Sex: Male
  Weight: 108.8633 kg

DRUGS (8)
  1. LEVITRA [Suspect]
     Indication: ERECTILE DYSFUNCTION
     Dosage: 20 MG, TOTAL DAILY, ORAL
     Route: 048
     Dates: start: 20031205
  2. PLENDIL [Concomitant]
  3. PLAVIX [Concomitant]
  4. ARICEPT [Concomitant]
  5. GLUCOSAMINE W/CHONDOITIN SULFATES [Concomitant]
  6. VIOXX [Concomitant]
  7. LIPITOR [Concomitant]
  8. NORVASC [Concomitant]

REACTIONS (1)
  - ERECTILE DYSFUNCTION [None]
